FAERS Safety Report 4925026-0 (Version None)
Quarter: 2006Q1

REPORT INFORMATION
  Report Type: 
  Country: None (occurrence: None)
  Receive Date: 20060222
  Receipt Date: 20060210
  Transmission Date: 20060701
  Serious: Yes (Hospitalization)
  Sender: FDA-Public Use
  Company Number: 2006-00530

PATIENT
  Age: 70 Year
  Sex: Female

DRUGS (1)
  1. FERRLECIT [Suspect]
     Indication: ANAEMIA
     Dosage: 125 MG, 1/WEEK FOR 4 WEEKS, INTRAVENOUS
     Route: 042
     Dates: start: 20060119, end: 20060209

REACTIONS (5)
  - BLOOD PRESSURE INCREASED [None]
  - CHEST PAIN [None]
  - DYSPNOEA [None]
  - ELECTROCARDIOGRAM ABNORMAL [None]
  - LETHARGY [None]
